FAERS Safety Report 4342018-3 (Version None)
Quarter: 2004Q2

REPORT INFORMATION
  Report Type: 
  Country: None (occurrence: None)
  Receive Date: 20040415
  Receipt Date: 20040330
  Transmission Date: 20050107
  Serious: Yes (Hospitalization, Other)
  Sender: FDA-Public Use
  Company Number: USA040363665

PATIENT
  Age: 65 Year
  Sex: Female
  Weight: 66 kg

DRUGS (6)
  1. HUMALOG [Suspect]
     Indication: DIABETES MELLITUS NON-INSULIN-DEPENDENT
  2. HUMALOG MIX 75/25 [Suspect]
     Indication: DIABETES MELLITUS NON-INSULIN-DEPENDENT
     Dosage: 15 U/2 DAY
  3. TRICOR [Concomitant]
  4. LOTENSIN [Concomitant]
  5. PLAVIX [Concomitant]
  6. DIOVAN [Concomitant]

REACTIONS (6)
  - BLINDNESS UNILATERAL [None]
  - BLOOD GLUCOSE DECREASED [None]
  - CAROTID ENDARTERECTOMY [None]
  - CATARACT [None]
  - MACULAR OEDEMA [None]
  - PHARMACEUTICAL PRODUCT COMPLAINT [None]
